FAERS Safety Report 10432861 (Version 1)
Quarter: 2014Q3

REPORT INFORMATION
  Report Type: Spontaneous
  Country: ES (occurrence: None)
  Receive Date: 20140903
  Receipt Date: 20140903
  Transmission Date: 20150326
  Serious: Yes (Hospitalization)
  Sender: FDA-Public Use
  Company Number: 2014JUB00104

PATIENT
  Age: 97 Year
  Sex: Female

DRUGS (2)
  1. DEXCHLORPHENIRAMINE [Suspect]
     Active Substance: DEXCHLORPHENIRAMINE
     Indication: ANAPHYLACTIC REACTION
     Route: 013
  2. PREDNISONE. [Suspect]
     Active Substance: PREDNISONE
     Indication: ANAPHYLACTIC REACTION
     Route: 013

REACTIONS (4)
  - Incorrect route of drug administration [None]
  - Peripheral arterial occlusive disease [None]
  - Peripheral ischaemia [None]
  - Cyanosis [None]
